FAERS Safety Report 6557482-9 (Version None)
Quarter: 2010Q1

REPORT INFORMATION
  Report Type: 
  Country: None (occurrence: None)
  Receive Date: 20100129
  Receipt Date: 20100113
  Transmission Date: 20100710
  Serious: Yes (Hospitalization)
  Sender: FDA-Public Use
  Company Number: IT-ROCHE-611351

PATIENT
  Sex: Male
  Weight: 86 kg

DRUGS (1)
  1. DARBEPOETIN ALFA (NON-ROCHE/NON-COMPARATOR) [Suspect]
     Dosage: FORM: SYRINGES, FREQUENCY: Q2S
     Route: 058
     Dates: start: 20041214

REACTIONS (1)
  - RENAL FAILURE CHRONIC [None]
